FAERS Safety Report 23980654 (Version 1)
Quarter: 2024Q2

REPORT INFORMATION
  Report Type: Spontaneous
  Country: US (occurrence: US)
  Receive Date: 20240617
  Receipt Date: 20240617
  Transmission Date: 20240716
  Serious: No
  Sender: FDA-Public Use
  Company Number: US-TAKEDA-2024TUS059541

PATIENT
  Sex: Female
  Weight: 94 kg

DRUGS (4)
  1. CARBAMAZEPINE [Suspect]
     Active Substance: CARBAMAZEPINE
     Indication: Epilepsy
     Dosage: 900 MILLIGRAM, QD
     Route: 065
  2. CARBAMAZEPINE [Suspect]
     Active Substance: CARBAMAZEPINE
     Indication: Seizure
  3. CARBATROL [Suspect]
     Active Substance: CARBAMAZEPINE
     Indication: Seizure
     Dosage: 900 MILLIGRAM, QD
     Route: 065
  4. CARBATROL [Suspect]
     Active Substance: CARBAMAZEPINE
     Indication: Epilepsy

REACTIONS (2)
  - Product availability issue [Unknown]
  - No adverse event [Unknown]
